FAERS Safety Report 4862756-3 (Version None)
Quarter: 2005Q4

REPORT INFORMATION
  Report Type: 
  Country: None (occurrence: None)
  Receive Date: 20051221
  Receipt Date: 20051209
  Transmission Date: 20060501
  Serious: Yes (Other)
  Sender: FDA-Public Use
  Company Number: CA-BRISTOL-MYERS SQUIBB COMPANY-13220892

PATIENT
  Age: 93 Year
  Sex: Female

DRUGS (10)
  1. TEQUIN [Suspect]
     Route: 048
  2. ARIMIDEX [Concomitant]
  3. ASPIRIN [Concomitant]
  4. FUROSEMIDE [Concomitant]
     Route: 042
  5. GENTAMICIN [Concomitant]
     Route: 042
  6. HYDROCHLOROTHIAZIDE [Concomitant]
  7. IBUPROFEN [Concomitant]
  8. LORAZEPAM [Concomitant]
     Route: 048
  9. NORVASC [Concomitant]
  10. PANTOPRAZOLE [Concomitant]

REACTIONS (6)
  - ANION GAP ABNORMAL [None]
  - BLOOD CREATININE [None]
  - DYSPNOEA [None]
  - HYPERGLYCAEMIA [None]
  - POLYDIPSIA [None]
  - POLYURIA [None]
